FAERS Safety Report 9536600 (Version 1)
Quarter: 2013Q2

REPORT INFORMATION
  Report Type: Spontaneous
  Country: US (occurrence: None)
  Receive Date: 20130507
  Receipt Date: 20130507
  Transmission Date: 20140414
  Serious: No
  Sender: FDA-Public Use
  Company Number: PHEH2012US016828

PATIENT
  Age: 65 Year
  Sex: Female

DRUGS (9)
  1. AFINITOR (RAD) UNKNOWN [Suspect]
     Indication: RENAL CELL CARCINOMA
     Dates: start: 201111
  2. ALDACTONE (SPIRONOLACTONE) [Concomitant]
  3. LASIX (FUROSEMIDE) [Concomitant]
  4. FENTANYL (FENTANYL) [Concomitant]
  5. SANDOSTATIN (OCTREOTIDE) [Concomitant]
  6. POTASSIUM (POTASSIUM) [Concomitant]
  7. CENTRUM SILVER (ASCORBIC ACID, CALCIUM, MINERALS OS, RETINOL, TOCOPHERYL ACETATE, VITAMIN B NOS, VITAMINS NOS, ZINC) [Concomitant]
  8. OXYCODONE (OXYCODONE) [Concomitant]
  9. ASPIRINE (ACETYLSALICYLIC ACID) [Concomitant]

REACTIONS (6)
  - Metastatic neoplasm [None]
  - Visual impairment [None]
  - Fluid retention [None]
  - Pain [None]
  - Dyspnoea [None]
  - Fatigue [None]
